FAERS Safety Report 16039222 (Version 3)
Quarter: 2019Q2

REPORT INFORMATION
  Report Type: Spontaneous
  Country: US (occurrence: US)
  Receive Date: 20190306
  Receipt Date: 20190528
  Transmission Date: 20190711
  Serious: Yes (Other)
  Sender: FDA-Public Use
  Company Number: US-BEH-2019100085

PATIENT
  Age: 65 Year
  Sex: Female

DRUGS (9)
  1. HIZENTRA [Suspect]
     Active Substance: HUMAN IMMUNOGLOBULIN G
     Indication: PRODUCT USED FOR UNKNOWN INDICATION
     Dosage: UNK
     Route: 065
  2. HIZENTRA [Suspect]
     Active Substance: HUMAN IMMUNOGLOBULIN G
     Dosage: UNK
     Route: 065
  3. HIZENTRA [Suspect]
     Active Substance: HUMAN IMMUNOGLOBULIN G
     Dosage: UNK
     Route: 065
     Dates: start: 20190129, end: 20190129
  4. HIZENTRA [Suspect]
     Active Substance: HUMAN IMMUNOGLOBULIN G
     Dosage: 12 G, QW
     Route: 065
  5. HIZENTRA [Suspect]
     Active Substance: HUMAN IMMUNOGLOBULIN G
     Dosage: UNK
     Route: 065
     Dates: start: 201902, end: 201902
  6. PRIVIGEN [Suspect]
     Active Substance: HUMAN IMMUNOGLOBULIN G
     Indication: PRODUCT USED FOR UNKNOWN INDICATION
     Dosage: UNK
     Route: 065
     Dates: start: 201903, end: 201903
  7. HIZENTRA [Suspect]
     Active Substance: HUMAN IMMUNOGLOBULIN G
     Dosage: UNK
     Route: 065
     Dates: start: 20181126, end: 20181126
  8. SULFASALAZINE. [Suspect]
     Active Substance: SULFASALAZINE
     Route: 065
  9. HIZENTRA [Suspect]
     Active Substance: HUMAN IMMUNOGLOBULIN G
     Dosage: UNK
     Route: 065
     Dates: start: 20181227, end: 20181227

REACTIONS (36)
  - Respiratory disorder [Unknown]
  - Feeling jittery [Unknown]
  - Erythema [Recovered/Resolved]
  - Bruxism [Unknown]
  - Paranasal sinus discomfort [Unknown]
  - Alopecia [Recovered/Resolved]
  - Infusion site swelling [Unknown]
  - Malabsorption from administration site [Unknown]
  - Ear pain [Unknown]
  - Abdominal pain upper [Unknown]
  - Constipation [Unknown]
  - Fatigue [Unknown]
  - Intestinal haemorrhage [Recovered/Resolved]
  - Eye discharge [Unknown]
  - Pruritus [Unknown]
  - Weight increased [Unknown]
  - Dysphagia [Unknown]
  - Hiccups [Unknown]
  - Infusion site erythema [Unknown]
  - Infusion site inflammation [Unknown]
  - Rheumatoid arthritis [Unknown]
  - Myalgia [Unknown]
  - Arthralgia [Unknown]
  - Cold sweat [Unknown]
  - Infusion site pain [Unknown]
  - Abdominal discomfort [Unknown]
  - Joint swelling [Unknown]
  - Dyspepsia [Unknown]
  - Burning sensation [Unknown]
  - Hyperhidrosis [Unknown]
  - Feeling abnormal [Unknown]
  - Asthenia [Unknown]
  - Headache [Unknown]
  - Blood pressure fluctuation [Unknown]
  - Headache [Unknown]
  - Tongue coated [Unknown]

NARRATIVE: CASE EVENT DATE: 201905
